FAERS Safety Report 9579463 (Version 2)
Quarter: 2013Q4

REPORT INFORMATION
  Report Type: Spontaneous
  Country: US (occurrence: US)
  Receive Date: 20131001
  Receipt Date: 20131001
  Transmission Date: 20140711
  Serious: No
  Sender: FDA-Public Use
  Company Number: US-AMGEN-USASP2013012356

PATIENT
  Age: 35 Year
  Sex: Male
  Weight: 50.79 kg

DRUGS (8)
  1. PROCRIT [Suspect]
     Indication: ANAEMIA
     Dosage: 0.2 CC, QWK
     Route: 058
     Dates: start: 201211, end: 20130212
  2. HEPARIN [Concomitant]
     Indication: HYPERCOAGULATION
     Dosage: 5000 UNIT, QD, SOLUTION
     Route: 058
  3. HYDROCORTISONE [Concomitant]
     Indication: HYPOTENSION
     Dosage: 5 MG, QD
     Route: 048
  4. FLUDROCORTISONE [Concomitant]
     Indication: HYPOTENSION
     Dosage: 0.1 MG, QD
     Route: 048
  5. LEVOTHYROXINE [Concomitant]
     Indication: HYPOTHYROIDISM
     Dosage: 75 MUG, QD
     Route: 048
  6. LIOTHYRONINE [Concomitant]
     Indication: HYPOTHYROIDISM
     Dosage: 20 MUG, QD
     Route: 048
  7. TESTOSTERONE [Concomitant]
     Dosage: 1 G, QD
     Route: 062
  8. SODIUM CHLORIDE [Concomitant]
     Indication: VITAMIN SUPPLEMENTATION
     Dosage: UNK, SOLUTION
     Route: 042

REACTIONS (4)
  - Influenza like illness [Not Recovered/Not Resolved]
  - Pain [Not Recovered/Not Resolved]
  - Feeling abnormal [Not Recovered/Not Resolved]
  - Pyrexia [Not Recovered/Not Resolved]
